FAERS Safety Report 7340858-X (Version None)
Quarter: 2011Q1

REPORT INFORMATION
  Report Type: 
  Country: None (occurrence: None)
  Receive Date: 20110309
  Receipt Date: 20110228
  Transmission Date: 20110831
  Serious: Yes (Other)
  Sender: FDA-Public Use
  Company Number: US-TEVA-268966USA

PATIENT
  Sex: Female

DRUGS (5)
  1. WARFARIN SODIUM [Suspect]
     Route: 048
     Dates: start: 20090101
  2. ENOXAPARIN SODIUM [Concomitant]
     Indication: ANTICOAGULANT THERAPY
  3. TOPIRAMATE [Concomitant]
     Indication: MIGRAINE
  4. ASPIRIN [Concomitant]
     Indication: ANTICOAGULANT THERAPY
  5. WARFARIN SODIUM [Suspect]
     Indication: ANTICOAGULANT THERAPY
     Route: 048
     Dates: start: 20090101

REACTIONS (4)
  - FEELING COLD [None]
  - INTRA-UTERINE DEATH [None]
  - CHILLS [None]
  - PREMATURE SEPARATION OF PLACENTA [None]
